FAERS Safety Report 4724467-4 (Version None)
Quarter: 2005Q3

REPORT INFORMATION
  Report Type: 
  Country: None (occurrence: None)
  Receive Date: 20050726
  Receipt Date: 20050718
  Transmission Date: 20060218
  Serious: Yes (Hospitalization)
  Sender: FDA-Public Use
  Company Number: 2005UW10695

PATIENT
  Age: 70 Year
  Sex: Male
  Weight: 98.2 kg

DRUGS (10)
  1. IRESSA [Suspect]
     Indication: RENAL CELL CARCINOMA STAGE UNSPECIFIED
     Route: 048
     Dates: start: 20050627
  2. INTERFERON [Suspect]
     Indication: RENAL CELL CARCINOMA STAGE UNSPECIFIED
     Dosage: PEG TUBE
     Dates: start: 20050627
  3. GLYBURIDE [Concomitant]
     Indication: DIABETES MELLITUS
     Route: 048
     Dates: start: 19990101
  4. LISINOPRIL [Concomitant]
     Indication: HYPERTENSION
     Route: 048
     Dates: start: 19990101
  5. TAMSULOSIN [Concomitant]
     Indication: DIABETES MELLITUS
     Route: 048
     Dates: start: 20050101
  6. ATENOLOL [Concomitant]
     Indication: HEART RATE IRREGULAR
     Route: 048
     Dates: start: 20000101
  7. HYDROCHLOROTHIAZIDE [Concomitant]
  8. FINASTERIDE [Concomitant]
  9. ALPRAZOLAM [Concomitant]
  10. HYDROCODONE BITARTRATE [Concomitant]

REACTIONS (8)
  - AGRANULOCYTOSIS [None]
  - CARDIOMEGALY [None]
  - DEHYDRATION [None]
  - HYPERGLYCAEMIA [None]
  - HYPONATRAEMIA [None]
  - LUNG DISORDER [None]
  - LUNG INFILTRATION [None]
  - RENAL FAILURE [None]
